FAERS Safety Report 8850456 (Version 1)
Quarter: 2012Q4

REPORT INFORMATION
  Report Type: 
  Country: FR (occurrence: FR)
  Receive Date: 20121019
  Receipt Date: 20121019
  Transmission Date: 20130627
  Serious: Yes (Other)
  Sender: FDA-Public Use
  Company Number: FR-PFIZER INC-2012259128

PATIENT
  Sex: Male

DRUGS (9)
  1. CELEBREX [Suspect]
     Indication: PAIN
     Dosage: 200 mg, 2x/day
     Dates: start: 20120906
  2. COAPROVEL [Concomitant]
     Dosage: 1 DF, 1x/day
  3. ATENOLOL [Concomitant]
     Dosage: 0.5 DF, 1x/day, 50
  4. KARDEGIC [Concomitant]
     Dosage: 1 DF, 1x/day
  5. TAMSULOSIN [Concomitant]
     Dosage: 1 DF, 1x/day
  6. ALLOPURINOL [Concomitant]
     Dosage: 1 DF, 1x/day, 300
  7. LEVOTHYROX [Concomitant]
     Dosage: 1 DF, 1x/day
  8. PIASCLEDINE [Concomitant]
     Dosage: 1 DF, 1x/day, 300
  9. PANTOPRAZOL [Concomitant]
     Dosage: 1 DF, 1x/day, 40

REACTIONS (4)
  - Blood pressure fluctuation [Unknown]
  - Extrasystoles [Unknown]
  - Heart rate decreased [Unknown]
  - Pain [Unknown]
